FAERS Safety Report 10570802 (Version 1)
Quarter: 2014Q4

REPORT INFORMATION
  Report Type: Spontaneous
  Country: US (occurrence: None)
  Receive Date: 20141106
  Receipt Date: 20141106
  Transmission Date: 20150529
  Serious: No
  Sender: FDA-Public Use
  Company Number: None

PATIENT
  Age: 76 Year
  Sex: Male

DRUGS (13)
  1. XTANDI [Suspect]
     Active Substance: ENZALUTAMIDE
     Indication: NEOPLASM MALIGNANT
     Route: 048
     Dates: start: 201410
  2. PREDNISONE. [Concomitant]
     Active Substance: PREDNISONE
  3. GABAPENTIN. [Concomitant]
     Active Substance: GABAPENTIN
  4. GABAPENTIN. [Concomitant]
     Active Substance: GABAPENTIN
  5. VITAMN A CAP [Concomitant]
  6. CENTRUM [Concomitant]
     Active Substance: VITAMINS
  7. PROMETHAZINE [Concomitant]
     Active Substance: PROMETHAZINE\PROMETHAZINE HYDROCHLORIDE
  8. ALPRAZOLAM. [Concomitant]
     Active Substance: ALPRAZOLAM
  9. PROPRANOLOL [Concomitant]
     Active Substance: PROPRANOLOL\PROPRANOLOL HYDROCHLORIDE
  10. OMEPRAZOLE. [Concomitant]
     Active Substance: OMEPRAZOLE
  11. MORPHINE POW SULFATE [Concomitant]
  12. ONDANSETRON [Concomitant]
     Active Substance: ONDANSETRON
  13. BUTALBITAL AND ACETAMINOPHEN [Concomitant]
     Active Substance: ACETAMINOPHEN\BUTALBITAL

REACTIONS (3)
  - Fatigue [None]
  - Asthenia [None]
  - Limb discomfort [None]

NARRATIVE: CASE EVENT DATE: 201410
